FAERS Safety Report 4322235-9 (Version None)
Quarter: 2004Q1

REPORT INFORMATION
  Report Type: 
  Country: None (occurrence: None)
  Receive Date: 20040319
  Receipt Date: 20040309
  Transmission Date: 20041129
  Serious: Yes (Hospitalization)
  Sender: FDA-Public Use
  Company Number: 163-20785-04030238

PATIENT
  Age: 54 Year
  Sex: Female

DRUGS (1)
  1. THALOMID [Suspect]
     Indication: SARCOIDOSIS
     Dosage: 200 MG, DAILY, ORAL
     Route: 048
     Dates: start: 20010802

REACTIONS (4)
  - CONVULSION [None]
  - DISEASE PROGRESSION [None]
  - DRUG WITHDRAWAL SYNDROME [None]
  - SARCOIDOSIS [None]
